FAERS Safety Report 10204930 (Version 1)
Quarter: 2014Q2

REPORT INFORMATION
  Report Type: Spontaneous
  Country: BE (occurrence: BE)
  Receive Date: 20140529
  Receipt Date: 20140529
  Transmission Date: 20141212
  Serious: Yes (Other)
  Sender: FDA-Public Use
  Company Number: BE-VERTEX PHARMACEUTICALS INC-2014-002532

PATIENT
  Age: 73 Year
  Sex: Male

DRUGS (7)
  1. INCIVO [Suspect]
     Indication: HEPATITIS C
     Dosage: 750 MG, TID
     Route: 048
     Dates: start: 20130227, end: 20130410
  2. PEGINTERFERON ALFA 2A [Suspect]
     Indication: HEPATITIS C
     Dosage: 180 ?G, QW
     Route: 058
     Dates: start: 20130227, end: 20130528
  3. RIBAVIRIN [Suspect]
     Indication: HEPATITIS C
     Dosage: 1000 MG, QD
     Route: 048
     Dates: start: 20130227, end: 20130528
  4. COVERSYL [Concomitant]
     Dosage: 10 MG, UNK
     Route: 048
     Dates: start: 20130218
  5. LIPANTHYL [Concomitant]
     Dosage: UNK
     Route: 048
     Dates: start: 20130218
  6. ASAFLOW [Concomitant]
     Dosage: 80 MG, UNK
     Route: 048
     Dates: start: 20111114
  7. PLAVIX [Concomitant]
     Dosage: UNK
     Route: 065

REACTIONS (3)
  - Asthenia [Not Recovered/Not Resolved]
  - Oedema peripheral [Not Recovered/Not Resolved]
  - Eczema [Not Recovered/Not Resolved]
